FAERS Safety Report 11491577 (Version 3)
Quarter: 2015Q4

REPORT INFORMATION
  Report Type: Spontaneous
  Country: JP (occurrence: JP)
  Receive Date: 20150910
  Receipt Date: 20151108
  Transmission Date: 20160304
  Serious: Yes (Hospitalization, Disabling, Other)
  Sender: FDA-Public Use
  Company Number: JP-BRISTOL-MYERS SQUIBB COMPANY-BMS-2015-060112

PATIENT
  Age: 65 Year
  Sex: Male
  Weight: 51.9 kg

DRUGS (4)
  1. HEPARIN [Suspect]
     Active Substance: HEPARIN SODIUM
     Dosage: 12000 UNIT, QD
     Route: 041
     Dates: start: 20150821, end: 20150822
  2. HEPARIN [Suspect]
     Active Substance: HEPARIN SODIUM
     Dosage: 12000 UNIT, QD
     Route: 041
     Dates: start: 20150819, end: 20150820
  3. ELIQUIS [Suspect]
     Active Substance: APIXABAN
     Indication: CEREBROVASCULAR ACCIDENT PROPHYLAXIS
     Dosage: 5 MG, BID
     Route: 048
     Dates: start: 20150817, end: 20150823
  4. HEPARIN [Suspect]
     Active Substance: HEPARIN SODIUM
     Indication: PREOPERATIVE CARE
     Dosage: 10000 UNIT, QD
     Route: 041
     Dates: start: 20150817, end: 20150819

REACTIONS (6)
  - Subarachnoid haemorrhage [Recovered/Resolved with Sequelae]
  - Seizure [Unknown]
  - Cerebral infarction [Recovered/Resolved with Sequelae]
  - Epistaxis [Recovered/Resolved]
  - Aneurysm repair [Unknown]
  - Drug-induced liver injury [Recovered/Resolved]

NARRATIVE: CASE EVENT DATE: 20150823
